FAERS Safety Report 15253506 (Version 1)
Quarter: 2018Q3

REPORT INFORMATION
  Report Type: Report from Study
  Country: US (occurrence: US)
  Receive Date: 20180808
  Receipt Date: 20180808
  Transmission Date: 20181010
  Serious: Yes (Other)
  Sender: FDA-Public Use
  Company Number: US-BEH-2018093489

PATIENT
  Sex: Male

DRUGS (1)
  1. PRIVIGEN [Suspect]
     Active Substance: HUMAN IMMUNOGLOBULIN G
     Indication: PRODUCT USED FOR UNKNOWN INDICATION
     Route: 065

REACTIONS (7)
  - Syphilis [Unknown]
  - Central nervous system lesion [Unknown]
  - Musculoskeletal stiffness [Unknown]
  - Amnesia [Unknown]
  - Encephalopathy [Unknown]
  - Meningitis [Unknown]
  - Headache [Unknown]

NARRATIVE: CASE EVENT DATE: 2018
